FAERS Safety Report 24641502 (Version 1)
Quarter: 2024Q4

REPORT INFORMATION
  Report Type: Spontaneous
  Country: AU (occurrence: AU)
  Receive Date: 20241120
  Receipt Date: 20241120
  Transmission Date: 20250114
  Serious: Yes (Other)
  Sender: CIPLA
  Company Number: AU-CIPLA LTD.-2024AU13247

PATIENT

DRUGS (5)
  1. ACYCLOVIR [Suspect]
     Active Substance: ACYCLOVIR
     Indication: Orbital myositis
     Dosage: UNK, SOLUTION FOR INJECTION
     Route: 042
  2. ACYCLOVIR [Suspect]
     Active Substance: ACYCLOVIR
     Indication: Herpes zoster meningoencephalitis
  3. PREDNISONE [Suspect]
     Active Substance: PREDNISONE
     Indication: Orbital myositis
     Dosage: UNK, 0.75 MG PER KG
     Route: 048
  4. FLUCLOXACILLIN SODIUM [Concomitant]
     Active Substance: FLUCLOXACILLIN SODIUM
     Indication: Evidence based treatment
     Dosage: UNK, EMPIRIC
     Route: 042
  5. CEFTRIAXONE [Concomitant]
     Active Substance: CEFTRIAXONE
     Indication: Evidence based treatment
     Dosage: UNK
     Route: 042

REACTIONS (1)
  - Drug ineffective [Unknown]
